FAERS Safety Report 14817183 (Version 3)
Quarter: 2018Q2

REPORT INFORMATION
  Report Type: Report from Study
  Country: US (occurrence: US)
  Receive Date: 20180426
  Receipt Date: 20180615
  Transmission Date: 20180711
  Serious: No
  Sender: FDA-Public Use
  Company Number: PHEH2018US016052

PATIENT
  Sex: Female

DRUGS (1)
  1. COSENTYX [Suspect]
     Active Substance: SECUKINUMAB
     Indication: ANKYLOSING SPONDYLITIS
     Dosage: 150 MG, QMO
     Route: 058
     Dates: start: 201802

REACTIONS (8)
  - Pain [Not Recovered/Not Resolved]
  - Depressed mood [Unknown]
  - Fatigue [Unknown]
  - Drug ineffective [Unknown]
  - Diarrhoea [Unknown]
  - Somnolence [Unknown]
  - Inflammation [Unknown]
  - Back pain [Unknown]
